FAERS Safety Report 5079549-7 (Version None)
Quarter: 2006Q3

REPORT INFORMATION
  Report Type: 
  Country: None (occurrence: None)
  Receive Date: 20060808
  Receipt Date: 20060720
  Transmission Date: 20061208
  Serious: Yes (Hospitalization)
  Sender: FDA-Public Use
  Company Number: US200607003716

PATIENT
  Age: 56 Year
  Sex: Female
  Weight: 94.8 kg

DRUGS (1)
  1. ZYPREXA [Suspect]
     Dosage: ORAL
     Route: 048
     Dates: start: 19960101

REACTIONS (8)
  - BLOOD TRIGLYCERIDES INCREASED [None]
  - CARDIAC DISORDER [None]
  - CEREBROVASCULAR DISORDER [None]
  - DIABETES MELLITUS [None]
  - HYPERTENSION [None]
  - HYPOGLYCAEMIA [None]
  - MYOCARDIAL ISCHAEMIA [None]
  - OBESITY [None]
